FAERS Safety Report 11372158 (Version 2)
Quarter: 2015Q4

REPORT INFORMATION
  Report Type: Spontaneous
  Country: CN (occurrence: CN)
  Receive Date: 20150812
  Receipt Date: 20151028
  Transmission Date: 20160304
  Serious: Yes (Other)
  Sender: FDA-Public Use
  Company Number: CN-GILEAD-2015-0167266

PATIENT
  Age: 42 Year
  Sex: Male

DRUGS (2)
  1. LAMIVUDINE. [Concomitant]
     Active Substance: LAMIVUDINE
     Indication: HEPATITIS B
     Dosage: UNK
     Route: 065
     Dates: start: 201312
  2. HEPSERA [Suspect]
     Active Substance: ADEFOVIR DIPIVOXIL
     Indication: HEPATITIS B
     Dosage: 10 MG, QD
     Route: 065
     Dates: end: 201312

REACTIONS (5)
  - Osteomalacia [Recovering/Resolving]
  - Chronic kidney disease [Recovering/Resolving]
  - Hypophosphataemia [Recovering/Resolving]
  - Osteoporosis [Recovering/Resolving]
  - Fanconi syndrome acquired [Recovering/Resolving]
